FAERS Safety Report 7586102-X (Version None)
Quarter: 2011Q2

REPORT INFORMATION
  Report Type: 
  Country: None (occurrence: None)
  Receive Date: 20110629
  Receipt Date: 20110629
  Transmission Date: 20111010
  Serious: Yes (Other)
  Sender: FDA-Public Use
  Company Number: None

PATIENT
  Age: 77 Year
  Sex: Female
  Weight: 63.5036 kg

DRUGS (1)
  1. NITROFUR LIQUID [Suspect]
     Indication: URINARY TRACT INFECTION
     Dosage: 2 TABLETS PER DAY FOR 7 DAY  ; 1 TABLET FOR 30 DAYS
     Dates: start: 20110518, end: 20110621

REACTIONS (4)
  - DYSGRAPHIA [None]
  - COUGH [None]
  - SKIN EXFOLIATION [None]
  - PAIN [None]
